FAERS Safety Report 4353169-1 (Version None)
Quarter: 2004Q2

REPORT INFORMATION
  Report Type: 
  Country: None (occurrence: None)
  Receive Date: 20040504
  Receipt Date: 20040504
  Transmission Date: 20050107
  Serious: Yes (Other)
  Sender: FDA-Public Use
  Company Number: None

PATIENT
  Age: 45 Year
  Sex: Female

DRUGS (1)
  1. ATENOLOL [Suspect]
     Dosage: 50 MG QD
     Dates: start: 20040401, end: 20040415

REACTIONS (4)
  - ANTICHOLINERGIC SYNDROME [None]
  - ARRHYTHMIA [None]
  - BLOOD PRESSURE INCREASED [None]
  - PHARMACEUTICAL PRODUCT COMPLAINT [None]
